FAERS Safety Report 13277485 (Version 2)
Quarter: 2017Q1

REPORT INFORMATION
  Report Type: Spontaneous
  Country: US (occurrence: US)
  Receive Date: 20170228
  Receipt Date: 20170324
  Transmission Date: 20170428
  Serious: Yes (Hospitalization, Other)
  Sender: FDA-Public Use
  Company Number: US-PERRIGO-17US001657

PATIENT
  Age: 68 Year
  Sex: Female
  Weight: 77.98 kg

DRUGS (3)
  1. ENTOCORT EC [Suspect]
     Active Substance: BUDESONIDE
     Indication: COLLAGEN DISORDER
     Dosage: 3 MG, TID
     Route: 048
     Dates: start: 20161216, end: 20170113
  2. PRAVASTATIN. [Concomitant]
     Active Substance: PRAVASTATIN
     Indication: BLOOD CHOLESTEROL INCREASED
     Dosage: 20 MG
     Route: 065
     Dates: start: 2007
  3. METOPROLOL TARTRATE. [Concomitant]
     Active Substance: METOPROLOL TARTRATE
     Indication: MITRAL VALVE PROLAPSE
     Dosage: 25 MG
     Route: 065
     Dates: start: 2007

REACTIONS (11)
  - Fatigue [Recovered/Resolved]
  - Blindness unilateral [Not Recovered/Not Resolved]
  - Nightmare [Recovered/Resolved]
  - Overdose [Recovered/Resolved]
  - Palpitations [Recovered/Resolved]
  - Malaise [Recovered/Resolved]
  - Off label use [Recovered/Resolved]
  - Dyspnoea [Recovered/Resolved]
  - Blood pressure increased [Recovered/Resolved]
  - Retinal vein occlusion [Not Recovered/Not Resolved]
  - Anxiety [Recovered/Resolved]

NARRATIVE: CASE EVENT DATE: 201612
